FAERS Safety Report 19832386 (Version 1)
Quarter: 2021Q3

REPORT INFORMATION
  Report Type: Spontaneous
  Country: US (occurrence: US)
  Receive Date: 20210915
  Receipt Date: 20210915
  Transmission Date: 20211014
  Serious: Yes (Life-Threatening, Hospitalization, Other)
  Sender: FDA-Public Use
  Company Number: US-MACLEODS PHARMACEUTICALS US LTD-MAC2021032650

PATIENT

DRUGS (1)
  1. ESCITALOPRAM TABLET 20 MG [Suspect]
     Active Substance: ESCITALOPRAM OXALATE
     Indication: SCHIZOAFFECTIVE DISORDER BIPOLAR TYPE
     Dosage: 20 DOSAGE FORM, SINGLE (TOTAL)
     Route: 065

REACTIONS (3)
  - Intentional overdose [Recovering/Resolving]
  - Suicide attempt [Unknown]
  - Serotonin syndrome [Recovering/Resolving]
